FAERS Safety Report 5499339-0 (Version None)
Quarter: 2007Q4

REPORT INFORMATION
  Report Type: 
  Country: None (occurrence: None)
  Receive Date: 20071026
  Receipt Date: 20071015
  Transmission Date: 20080405
  Serious: Yes (Hospitalization)
  Sender: FDA-Public Use
  Company Number: ES-ELI_LILLY_AND_COMPANY-ES200710004359

PATIENT
  Age: 24 Year
  Sex: Female

DRUGS (3)
  1. CAPASTAT SULFATE [Suspect]
     Dosage: 1 G, DAILY (1/D)
     Route: 030
  2. PYRAZINAMIDE [Concomitant]
     Indication: PULMONARY TUBERCULOSIS
     Dosage: UNK, UNKNOWN
     Route: 065
     Dates: start: 19810201
  3. PROTIONAMIDE [Concomitant]
     Indication: PULMONARY TUBERCULOSIS
     Dosage: UNK, UNKNOWN
     Route: 065
     Dates: start: 19810201

REACTIONS (3)
  - HYPOCALCAEMIA [None]
  - HYPOKALAEMIA [None]
  - HYPOMAGNESAEMIA [None]
